FAERS Safety Report 8144332-2 (Version None)
Quarter: 2012Q1

REPORT INFORMATION
  Report Type: 
  Country: None (occurrence: None)
  Receive Date: 20120217
  Receipt Date: 20120208
  Transmission Date: 20120608
  Serious: Yes (Other)
  Sender: FDA-Public Use
  Company Number: BE-JNJFOC-20120204685

PATIENT
  Sex: Male

DRUGS (3)
  1. METHYLPHENIDATE HCL [Concomitant]
     Indication: HYPERKINESIA
     Route: 048
  2. RISPERDAL [Suspect]
     Indication: MENTAL RETARDATION
     Route: 048
  3. RISPERDAL [Suspect]
     Indication: HYPERKINESIA
     Route: 048

REACTIONS (5)
  - TORTICOLLIS [None]
  - LYMPHADENITIS [None]
  - NASOPHARYNGITIS [None]
  - OROPHARYNGEAL PAIN [None]
  - VIRAL INFECTION [None]
